FAERS Safety Report 9536683 (Version 2)
Quarter: 2013Q3

REPORT INFORMATION
  Report Type: Spontaneous
  Country: IT (occurrence: IT)
  Receive Date: 20130919
  Receipt Date: 20130919
  Transmission Date: 20140515
  Serious: Yes (Other)
  Sender: FDA-Public Use
  Company Number: IT-JNJFOC-20130907128

PATIENT
  Sex: 0

DRUGS (15)
  1. TOPIRAMATE [Suspect]
     Indication: EPILEPSY
     Route: 048
  2. SODIUM VALPROATE [Suspect]
     Indication: MENTAL RETARDATION
     Route: 065
  3. SODIUM VALPROATE [Suspect]
     Indication: EPILEPSY
     Route: 065
  4. CARBAMAZEPINE [Suspect]
     Indication: MENTAL RETARDATION
     Route: 065
  5. CARBAMAZEPINE [Suspect]
     Indication: EPILEPSY
     Route: 065
  6. PHENOBARBITAL [Suspect]
     Indication: MENTAL RETARDATION
     Route: 065
  7. PHENOBARBITAL [Suspect]
     Indication: EPILEPSY
     Route: 065
  8. LAMOTRIGINE [Suspect]
     Indication: MENTAL RETARDATION
     Route: 065
  9. LAMOTRIGINE [Suspect]
     Indication: EPILEPSY
     Route: 065
  10. FELBAMATE [Suspect]
     Indication: MENTAL RETARDATION
     Route: 065
  11. FELBAMATE [Suspect]
     Indication: EPILEPSY
     Route: 065
  12. ETHOSUXIMIDE [Suspect]
     Indication: MENTAL RETARDATION
     Route: 065
  13. ETHOSUXIMIDE [Suspect]
     Indication: EPILEPSY
     Route: 065
  14. CLOBAZAM [Suspect]
     Indication: MENTAL RETARDATION
     Route: 065
  15. CLOBAZAM [Suspect]
     Indication: EPILEPSY
     Route: 065

REACTIONS (7)
  - Convulsion [Unknown]
  - Drug ineffective [Unknown]
  - Convulsion [Unknown]
  - Cognitive disorder [Not Recovered/Not Resolved]
  - Irritability [Unknown]
  - Abnormal behaviour [Not Recovered/Not Resolved]
  - Insomnia [Unknown]
